FAERS Safety Report 7277189-2 (Version None)
Quarter: 2010Q4

REPORT INFORMATION
  Report Type: 
  Country: None (occurrence: None)
  Receive Date: 20101201
  Receipt Date: 20091230
  Transmission Date: 20110411
  Serious: Yes (Hospitalization)
  Sender: FDA-Public Use
  Company Number: 292436

PATIENT
  Age: 71 Year
  Sex: Female
  Weight: 64.4 kg

DRUGS (2)
  1. NOVOLIN N [Suspect]
     Indication: TYPE 1 DIABETES MELLITUS
     Dosage: 10 IU, QD, SUBCUTANEOUS
     Route: 058
  2. NOVOLOG [Suspect]
     Indication: TYPE 1 DIABETES MELLITUS
     Dosage: SLIDING SCALE, TID AC MEALS, SUBCUTANEOUS
     Route: 058

REACTIONS (2)
  - BLOOD GLUCOSE DECREASED [None]
  - PRODUCT QUALITY ISSUE [None]
